FAERS Safety Report 19967683 (Version 1)
Quarter: 2021Q4

REPORT INFORMATION
  Report Type: Spontaneous
  Country: US (occurrence: US)
  Receive Date: 20211018
  Receipt Date: 20211018
  Transmission Date: 20220303
  Serious: Yes (Other)
  Sender: FDA-Public Use
  Company Number: None

PATIENT
  Age: 60 Year
  Sex: Female
  Weight: 57.6 kg

DRUGS (7)
  1. AZITHROMYCIN ANHYDROUS [Suspect]
     Active Substance: AZITHROMYCIN ANHYDROUS
     Indication: Bronchitis
     Dosage: ?          QUANTITY:6 TABLET(S);
     Route: 048
     Dates: start: 20210924, end: 20210927
  2. LIOTHYRONINE [Concomitant]
     Active Substance: LIOTHYRONINE
  3. XANAX [Concomitant]
     Active Substance: ALPRAZOLAM
  4. VITAMIN C [Concomitant]
     Active Substance: ASCORBIC ACID
  5. VITAMIN D3 [Concomitant]
     Active Substance: CHOLECALCIFEROL
  6. QUERCETIN [Concomitant]
     Active Substance: QUERCETIN
  7. ZINC [Concomitant]
     Active Substance: ZINC

REACTIONS (5)
  - Deafness [None]
  - Tinnitus [None]
  - Dizziness [None]
  - Balance disorder [None]
  - Ear congestion [None]

NARRATIVE: CASE EVENT DATE: 20211004
